FAERS Safety Report 9382804 (Version 1)
Quarter: 2013Q3

REPORT INFORMATION
  Report Type: Spontaneous
  Country: US (occurrence: US)
  Receive Date: 20130703
  Receipt Date: 20130703
  Transmission Date: 20140515
  Serious: Yes (Hospitalization)
  Sender: FDA-Public Use
  Company Number: US-UCBSA-090157

PATIENT
  Age: 70 Year
  Sex: Female
  Weight: 104.3 kg

DRUGS (3)
  1. NEUPRO [Suspect]
     Indication: RESTLESS LEGS SYNDROME
     Dosage: TITRATED UPTO 3 MG
     Route: 062
  2. NEUPRO [Suspect]
     Indication: RESTLESS LEGS SYNDROME
     Dosage: 1 MG
     Route: 062
  3. BUPROPION [Concomitant]
     Dosage: UNKNOWN DOSE

REACTIONS (2)
  - Tremor [Recovered/Resolved]
  - Gait disturbance [Recovered/Resolved]
